FAERS Safety Report 6696933-6 (Version None)
Quarter: 2010Q2

REPORT INFORMATION
  Report Type: 
  Country: None (occurrence: None)
  Receive Date: 20100426
  Receipt Date: 20100415
  Transmission Date: 20101027
  Serious: Yes (Other)
  Sender: FDA-Public Use
  Company Number: PHHY2010FR21164

PATIENT
  Sex: Male

DRUGS (6)
  1. RASILEZ [Suspect]
     Dosage: 300 MG, UNK
  2. EUPRESSYL [Concomitant]
     Indication: HYPERTENSION
     Dosage: 300 MG, BID
  3. MOPRAL [Concomitant]
     Dosage: UNK
  4. NOVONORM [Concomitant]
     Indication: DIABETES MELLITUS
     Dosage: UNK
  5. TARDYFERON [Concomitant]
     Dosage: UNK
  6. LERCAN [Concomitant]
     Dosage: UNK

REACTIONS (2)
  - NAUSEA [None]
  - VOMITING [None]
